FAERS Safety Report 8025868-1 (Version None)
Quarter: 2012Q1

REPORT INFORMATION
  Report Type: 
  Country: None (occurrence: None)
  Receive Date: 20120105
  Receipt Date: 20120103
  Transmission Date: 20120608
  Serious: Yes (Hospitalization)
  Sender: FDA-Public Use
  Company Number: FR-ROCHE-1027237

PATIENT
  Sex: Male

DRUGS (1)
  1. NAPROXEN [Suspect]
     Indication: ARTHRALGIA
     Route: 048
     Dates: start: 20111121, end: 20111123

REACTIONS (1)
  - PULMONARY OEDEMA [None]
